FAERS Safety Report 5724408-7 (Version None)
Quarter: 2008Q2

REPORT INFORMATION
  Report Type: 
  Country: None (occurrence: None)
  Receive Date: 20080429
  Receipt Date: 20080422
  Transmission Date: 20081010
  Serious: Yes (Other)
  Sender: FDA-Public Use
  Company Number: CHNY2008DE01544

PATIENT
  Age: 41 Year
  Sex: Female

DRUGS (3)
  1. NICOTINE [Suspect]
     Indication: SMOKING CESSATION THERAPY
     Dosage: 2 MG, CHEWED
     Dates: start: 20080306, end: 20080306
  2. ALVESCO [Concomitant]
  3. FORMATRIS NOWOLIZER [Concomitant]

REACTIONS (4)
  - ANXIETY [None]
  - DYSPNOEA [None]
  - OROPHARYNGEAL SWELLING [None]
  - THROAT IRRITATION [None]
